FAERS Safety Report 25046831 (Version 2)
Quarter: 2025Q1

REPORT INFORMATION
  Report Type: Report from Study
  Country: US (occurrence: US)
  Receive Date: 20250306
  Receipt Date: 20250321
  Transmission Date: 20250408
  Serious: Yes (Other)
  Sender: BAYER HEALTHCARE PHARMACEUTICALS INC.
  Company Number: US-BAYER-2025A007996

PATIENT
  Age: 86 Year
  Sex: Male

DRUGS (2)
  1. STIVARGA [Suspect]
     Active Substance: REGORAFENIB MONOHYDRATE
     Dosage: 160 MG, QD(3 WEEKS THEN 1 WEEK OFF  )
     Route: 048
     Dates: start: 20241223
  2. STIVARGA [Suspect]
     Active Substance: REGORAFENIB MONOHYDRATE
     Dosage: 40 MG, QD
     Dates: start: 20250227

REACTIONS (2)
  - Neuropathy peripheral [Not Recovered/Not Resolved]
  - Drug intolerance [Not Recovered/Not Resolved]
